FAERS Safety Report 8880362 (Version 1)
Quarter: 2012Q4

REPORT INFORMATION
  Report Type: 
  Country: ES (occurrence: ES)
  Receive Date: 20121031
  Receipt Date: 20121031
  Transmission Date: 20130627
  Serious: Yes (Death, Other)
  Sender: FDA-Public Use
  Company Number: PHHY2012ES097673

PATIENT
  Age: 89 Year
  Sex: Male

DRUGS (3)
  1. CICLOSPORIN [Suspect]
     Indication: ACQUIRED HAEMOPHILIA
     Dosage: 5 mg/kg, per day
     Route: 048
  2. METHYLPREDNISOLONE [Concomitant]
     Indication: ACQUIRED HAEMOPHILIA
     Dosage: 1 g, per day, for three days
     Route: 042
  3. PREDNISONE [Concomitant]
     Indication: ACQUIRED HAEMOPHILIA
     Dosage: 1 mg/kg, per day

REACTIONS (3)
  - Acute myocardial infarction [Fatal]
  - Progressive multifocal leukoencephalopathy [Recovered/Resolved]
  - Hypertensive encephalopathy [Recovered/Resolved]
